APPROVED DRUG PRODUCT: ENALAPRIL MALEATE
Active Ingredient: ENALAPRIL MALEATE
Strength: 20MG
Dosage Form/Route: TABLET;ORAL
Application: A075178 | Product #004 | TE Code: AB
Applicant: AIPING PHARMACEUTICAL INC
Approved: Mar 23, 2001 | RLD: No | RS: No | Type: RX